FAERS Safety Report 5593104-1 (Version None)
Quarter: 2008Q1

REPORT INFORMATION
  Report Type: 
  Country: None (occurrence: None)
  Receive Date: 20080114
  Receipt Date: 20080114
  Transmission Date: 20080703
  Serious: Yes (Hospitalization)
  Sender: FDA-Public Use
  Company Number: None

PATIENT
  Age: 53 Year
  Sex: Male
  Weight: 49.8957 kg

DRUGS (6)
  1. TARCEVA [Suspect]
     Indication: TONGUE NEOPLASM MALIGNANT STAGE UNSPECIFIED
     Dosage: 150MG PO QD
     Route: 048
     Dates: end: 20071212
  2. FENTANYL [Concomitant]
  3. NYSTATIN [Concomitant]
  4. ZANTAC [Concomitant]
  5. IMODIUM [Concomitant]
  6. LORTAB [Concomitant]

REACTIONS (5)
  - ASTHENIA [None]
  - HYPOGLYCAEMIA [None]
  - HYPOTHERMIA [None]
  - INADEQUATE DIET [None]
  - PAIN [None]
